FAERS Safety Report 9059348 (Version 1)
Quarter: 2013Q1

REPORT INFORMATION
  Report Type: Spontaneous
  Country: US (occurrence: US)
  Receive Date: 20130211
  Receipt Date: 20130211
  Transmission Date: 20140127
  Serious: Yes (Hospitalization, Other)
  Sender: FDA-Public Use
  Company Number: US-AMGEN-USASP2013008005

PATIENT
  Sex: Female

DRUGS (1)
  1. ENBREL [Suspect]
     Indication: RHEUMATOID ARTHRITIS
     Dosage: 50 MG, QWK
     Dates: start: 20030101, end: 20120829

REACTIONS (9)
  - Intervertebral disc protrusion [Recovered/Resolved]
  - Benign neoplasm of thyroid gland [Recovered/Resolved]
  - Retinal detachment [Recovered/Resolved]
  - Vitreous loss [Recovered/Resolved]
  - Vitreous injury [Recovered/Resolved]
  - Nausea [Recovered/Resolved]
  - Swelling [Not Recovered/Not Resolved]
  - Joint destruction [Not Recovered/Not Resolved]
  - Mobility decreased [Not Recovered/Not Resolved]
